FAERS Safety Report 13580453 (Version 2)
Quarter: 2017Q3

REPORT INFORMATION
  Report Type: Spontaneous
  Country: US (occurrence: US)
  Receive Date: 20170525
  Receipt Date: 20170710
  Transmission Date: 20171127
  Serious: Yes (Life-Threatening, Other)
  Sender: FDA-Public Use
  Company Number: US-AUROBINDO-AUR-APL-2017-34420

PATIENT
  Age: 28 Year
  Sex: Male

DRUGS (18)
  1. ZOLPIDEM [Interacting]
     Active Substance: ZOLPIDEM\ZOLPIDEM TARTRATE
     Indication: INSOMNIA
     Dosage: 10 MG, NIGHTLY REGIMEN
     Route: 065
  2. PROPRANOLOL [Concomitant]
     Active Substance: PROPRANOLOL HYDROCHLORIDE
     Dosage: 10 MG, AS NEEDED
     Route: 065
  3. PRAZOSIN. [Concomitant]
     Active Substance: PRAZOSIN
  4. FLUOXETINE [Suspect]
     Active Substance: FLUOXETINE HYDROCHLORIDE
     Indication: POST-TRAUMATIC STRESS DISORDER
     Dosage: 60 MG, DAILY
     Route: 065
  5. HYDROXYZINE [Interacting]
     Active Substance: HYDROXYZINE HYDROCHLORIDE
     Dosage: NIGHTLY REGIMEN
  6. PRAZOSIN. [Concomitant]
     Active Substance: PRAZOSIN
     Dosage: 4 MG, UNK
     Route: 065
  7. PRAZOSIN. [Concomitant]
     Active Substance: PRAZOSIN
  8. FLUOXETINE [Interacting]
     Active Substance: FLUOXETINE HYDROCHLORIDE
     Indication: DEPRESSION
  9. TRAMADOL. [Interacting]
     Active Substance: TRAMADOL
     Indication: ARTHRALGIA
     Dosage: 400 MG, UNK
     Route: 065
  10. MELATONIN [Interacting]
     Active Substance: MELATONIN
     Indication: PRODUCT USED FOR UNKNOWN INDICATION
     Dosage: NIGHTLY REGIMEN
  11. PRAZOSIN. [Concomitant]
     Active Substance: PRAZOSIN
     Indication: NIGHTMARE
     Dosage: 2 MG, UNK
     Route: 065
  12. HYDROXYZINE [Interacting]
     Active Substance: HYDROXYZINE HYDROCHLORIDE
     Indication: PRODUCT USED FOR UNKNOWN INDICATION
     Dosage: 20 MG, NIGHTLY REGIMEN
     Route: 065
  13. TRAMADOL. [Interacting]
     Active Substance: TRAMADOL
  14. PROPRANOLOL [Concomitant]
     Active Substance: PROPRANOLOL HYDROCHLORIDE
     Dosage: AS NEEDED
  15. GABAPENTIN 300MG [Interacting]
     Active Substance: GABAPENTIN
     Indication: IRRITABILITY
     Dosage: 300 MG, 3 TIMES A DAY
     Route: 065
  16. GABAPENTIN 300MG [Interacting]
     Active Substance: GABAPENTIN
     Indication: ANXIETY
  17. PROPRANOLOL [Concomitant]
     Active Substance: PROPRANOLOL HYDROCHLORIDE
     Indication: ANXIETY
     Dosage: 60 MG, UNK
     Route: 065
  18. PROPRANOLOL [Concomitant]
     Active Substance: PROPRANOLOL HYDROCHLORIDE

REACTIONS (5)
  - Suicidal behaviour [Recovered/Resolved]
  - Abnormal sleep-related event [Recovered/Resolved]
  - Parasomnia [Recovered/Resolved]
  - Drug interaction [Recovered/Resolved]
  - Abnormal behaviour [Recovered/Resolved]
